FAERS Safety Report 5652624-1 (Version None)
Quarter: 2008Q1

REPORT INFORMATION
  Report Type: 
  Country: None (occurrence: None)
  Receive Date: 20080131
  Receipt Date: 20071016
  Transmission Date: 20080703
  Serious: No
  Sender: FDA-Public Use
  Company Number: US200710004226

PATIENT
  Age: 68 Year
  Sex: Female

DRUGS (2)
  1. BYETTA [Suspect]
     Indication: INSULIN-REQUIRING TYPE 2 DIABETES MELLITUS
     Dosage: 10 UG, 2/D, SUBCUTANEOUS
     Route: 058
     Dates: start: 20061101
  2. LANTUS [Concomitant]

REACTIONS (6)
  - BLOOD GLUCOSE DECREASED [None]
  - BLOOD GLUCOSE INCREASED [None]
  - PRURITUS [None]
  - PSORIASIS [None]
  - RASH [None]
  - TREMOR [None]
